FAERS Safety Report 22884616 (Version 2)
Quarter: 2025Q1

REPORT INFORMATION
  Report Type: Spontaneous
  Country: JP (occurrence: JP)
  Receive Date: 20230830
  Receipt Date: 20250218
  Transmission Date: 20250409
  Serious: Yes (Death)
  Sender: ELI LILLY AND COMPANY
  Company Number: JP-Merck Healthcare KGaA-2023469579

PATIENT
  Age: 47 Year
  Sex: Female

DRUGS (5)
  1. ERBITUX [Suspect]
     Active Substance: CETUXIMAB
     Indication: Colon cancer metastatic
     Route: 041
     Dates: start: 202012
  2. ENCORAFENIB [Concomitant]
     Active Substance: ENCORAFENIB
     Indication: Colon cancer metastatic
     Route: 065
     Dates: start: 202012
  3. ENCORAFENIB [Concomitant]
     Active Substance: ENCORAFENIB
     Indication: Colorectal cancer metastatic
  4. BINIMETINIB [Concomitant]
     Active Substance: BINIMETINIB
     Indication: Colon cancer metastatic
     Route: 065
     Dates: start: 202012
  5. BINIMETINIB [Concomitant]
     Active Substance: BINIMETINIB
     Indication: Colorectal cancer metastatic

REACTIONS (3)
  - Sepsis [Fatal]
  - Gastrointestinal haemorrhage [Fatal]
  - Malignant neoplasm progression [Fatal]
